FAERS Safety Report 8920011 (Version 3)
Quarter: 2012Q4

REPORT INFORMATION
  Report Type: 
  Country: PH (occurrence: PH)
  Receive Date: 20121121
  Receipt Date: 20121203
  Transmission Date: 20130627
  Serious: Yes (Death, Hospitalization, Other)
  Sender: FDA-Public Use
  Company Number: PH-009507513-1211PHL007026

PATIENT
  Age: 59 Year
  Sex: Male

DRUGS (1)
  1. COZAAR [Suspect]
     Dosage: one tablet, once a day
     Route: 048

REACTIONS (2)
  - Cardiac arrest [Fatal]
  - Renal disorder [Unknown]
